FAERS Safety Report 6870698-7 (Version None)
Quarter: 2010Q3

REPORT INFORMATION
  Report Type: 
  Country: None (occurrence: None)
  Receive Date: 20100723
  Receipt Date: 20090629
  Transmission Date: 20110219
  Serious: No
  Sender: FDA-Public Use
  Company Number: A0829460A

PATIENT
  Sex: Female

DRUGS (1)
  1. OLUX [Suspect]
     Indication: PRODUCT USED FOR UNKNOWN INDICATION
     Route: 061
     Dates: start: 20090501

REACTIONS (2)
  - APPLICATION SITE PAIN [None]
  - INCORRECT DRUG ADMINISTRATION DURATION [None]
